FAERS Safety Report 7133558-2 (Version None)
Quarter: 2010Q4

REPORT INFORMATION
  Report Type: 
  Country: None (occurrence: None)
  Receive Date: 20101202
  Receipt Date: 20101021
  Transmission Date: 20110411
  Serious: Yes (Hospitalization, Other)
  Sender: FDA-Public Use
  Company Number: PHHY2009AU36878

PATIENT
  Sex: Male

DRUGS (7)
  1. CLOZARIL [Suspect]
     Indication: SCHIZOPHRENIA, PARANOID TYPE
     Dosage: 350 MG, UNK
     Route: 048
     Dates: start: 20060102
  2. METFORMIN HYDROCHLORIDE [Concomitant]
     Dosage: 1 G, TID
  3. CARVEDILOL [Concomitant]
     Dosage: 3.125 G, BID
  4. PERINDOPRIL [Concomitant]
     Dosage: 5 MG, QD
  5. RISPERIDONE [Concomitant]
     Dosage: 5 MG, UNK
  6. GLICLAZIDE [Concomitant]
     Dosage: 160 G, BID
  7. ASPIRIN [Concomitant]
     Dosage: UNK

REACTIONS (10)
  - BLOOD ALKALINE PHOSPHATASE INCREASED [None]
  - BLOOD BILIRUBIN INCREASED [None]
  - BLOOD CHLORIDE DECREASED [None]
  - CARDIAC FAILURE [None]
  - COMA SCALE ABNORMAL [None]
  - CONFUSIONAL STATE [None]
  - DIARRHOEA [None]
  - GASTROENTERITIS [None]
  - HYPONATRAEMIA [None]
  - TROPONIN INCREASED [None]
